FAERS Safety Report 17539536 (Version 4)
Quarter: 2021Q3

REPORT INFORMATION
  Report Type: Spontaneous
  Country: US (occurrence: US)
  Receive Date: 20200313
  Receipt Date: 20210922
  Transmission Date: 20211014
  Serious: Yes (Other)
  Sender: FDA-Public Use
  Company Number: US-GILEAD-2020-0454517

PATIENT
  Age: 68 Year
  Sex: Male

DRUGS (4)
  1. BIKTARVY [Concomitant]
     Active Substance: BICTEGRAVIR SODIUM\EMTRICITABINE\TENOFOVIR ALAFENAMIDE FUMARATE
  2. TRUVADA [Suspect]
     Active Substance: EMTRICITABINE\TENOFOVIR DISOPROXIL FUMARATE
     Indication: HIV INFECTION
     Dosage: UNK
     Route: 048
     Dates: start: 20120920, end: 20190911
  3. TRUVADA [Suspect]
     Active Substance: EMTRICITABINE\TENOFOVIR DISOPROXIL FUMARATE
     Dosage: UNK
     Route: 048
     Dates: start: 201505, end: 201908
  4. STRIBILD [Suspect]
     Active Substance: COBICISTAT\ELVITEGRAVIR\EMTRICITABINE\TENOFOVIR DISOPROXIL FUMARATE
     Indication: HIV INFECTION
     Dosage: UNK
     Route: 048
     Dates: start: 20140328, end: 20140427

REACTIONS (10)
  - Anxiety [Unknown]
  - Bone density decreased [Unknown]
  - Pain [Unknown]
  - Spinal stenosis [Not Recovered/Not Resolved]
  - Economic problem [Unknown]
  - Tooth loss [Recovered/Resolved]
  - Anhedonia [Unknown]
  - Osteopenia [Recovered/Resolved]
  - Multiple fractures [Unknown]
  - Emotional distress [Unknown]

NARRATIVE: CASE EVENT DATE: 2015
